FAERS Safety Report 7939626-7 (Version None)
Quarter: 2011Q4

REPORT INFORMATION
  Report Type: 
  Country: None (occurrence: None)
  Receive Date: 20111125
  Receipt Date: 20111111
  Transmission Date: 20120403
  Serious: Yes (Hospitalization)
  Sender: FDA-Public Use
  Company Number: PHHY2011DE91425

PATIENT
  Sex: Male
  Weight: 102 kg

DRUGS (11)
  1. MOXONIDINE [Concomitant]
     Indication: HYPERTENSION
     Dosage: 0.4 MG, PER DAY
     Route: 048
     Dates: start: 20110211
  2. PREDNISONE TAB [Concomitant]
     Indication: NEPHROPATHY
     Dosage: 20 MG, PER DAY
     Route: 048
     Dates: start: 20101217
  3. RAMIPRIL [Concomitant]
     Indication: HYPERTENSION
     Dosage: 10 MG, PER DAY
     Route: 048
     Dates: start: 20101117
  4. FUROSEMIDE [Concomitant]
     Indication: HYPERTENSION
     Dosage: 250 MG, PER DAY
     Route: 048
     Dates: start: 20101112
  5. BUDENOFALK [Concomitant]
     Indication: ABDOMINAL DISCOMFORT
     Dosage: 6 MG, PER DAY
     Route: 048
     Dates: start: 20101112
  6. DEKRISTOL [Concomitant]
     Indication: HYPERPARATHYROIDISM SECONDARY
     Dosage: 20000 IU, PER MONTH
     Route: 048
     Dates: start: 20110110
  7. RASILEZ [Suspect]
     Indication: HYPERTENSION
     Dosage: 150 MG, PER DAY
     Route: 048
     Dates: start: 20110128
  8. KALINOR [Concomitant]
     Indication: HYPOKALAEMIA
     Dosage: UNK
     Route: 048
     Dates: start: 20101203
  9. BAYOTENSIN AKUT [Concomitant]
     Indication: HYPERTENSION
     Dosage: AS NEEDED
     Route: 048
     Dates: start: 20101203
  10. PANTOPRAZOLE [Concomitant]
     Indication: HYPERTENSION
     Dosage: 40 MG, PER DAY
     Route: 048
     Dates: start: 20101203
  11. NITREPRESS [Concomitant]
     Indication: HYPERTENSION
     Dosage: 20 MG, PER DAY
     Route: 048
     Dates: start: 20101206

REACTIONS (2)
  - EXTRASKELETAL OSSIFICATION [None]
  - WOUND INFECTION [None]
